FAERS Safety Report 10198270 (Version 1)
Quarter: 2014Q2

REPORT INFORMATION
  Report Type: Spontaneous
  Country: US (occurrence: US)
  Receive Date: 20140527
  Receipt Date: 20140527
  Transmission Date: 20141212
  Serious: No
  Sender: FDA-Public Use
  Company Number: US-NOVEN-13US008018

PATIENT
  Age: 59 Year
  Sex: Female

DRUGS (3)
  1. DAYTRANA [Suspect]
     Indication: SOMNOLENCE
     Dosage: 20MG AND 30MG
     Route: 062
  2. DAYTRANA [Suspect]
     Dosage: 40 MG, UNK
  3. DAYTRANA [Suspect]
     Dosage: 20 MG, UNK

REACTIONS (4)
  - Off label use [Not Recovered/Not Resolved]
  - Wrong technique in drug usage process [Not Recovered/Not Resolved]
  - Drug administered at inappropriate site [Not Recovered/Not Resolved]
  - Drug ineffective for unapproved indication [Not Recovered/Not Resolved]
